FAERS Safety Report 24562398 (Version 1)
Quarter: 2024Q4

REPORT INFORMATION
  Report Type: Spontaneous
  Country: US (occurrence: US)
  Receive Date: 20241029
  Receipt Date: 20241029
  Transmission Date: 20250114
  Serious: No
  Sender: JOHNSON AND JOHNSON
  Company Number: US-JNJFOC-20241040985

PATIENT
  Age: 20 Year
  Sex: Female

DRUGS (2)
  1. CONCERTA [Suspect]
     Active Substance: METHYLPHENIDATE HYDROCHLORIDE
     Indication: Attention deficit hyperactivity disorder
     Route: 065
  2. CONCERTA [Suspect]
     Active Substance: METHYLPHENIDATE HYDROCHLORIDE
     Route: 065
     Dates: start: 2022

REACTIONS (4)
  - Therapy cessation [Unknown]
  - Loss of personal independence in daily activities [Unknown]
  - Abnormal behaviour [Unknown]
  - Binge eating [Unknown]

NARRATIVE: CASE EVENT DATE: 20241001
